FAERS Safety Report 23581057 (Version 1)
Quarter: 2024Q1

REPORT INFORMATION
  Report Type: Spontaneous
  Country: US (occurrence: None)
  Receive Date: 20240229
  Receipt Date: 20240229
  Transmission Date: 20240410
  Serious: No
  Sender: FDA-Public Use
  Company Number: None

PATIENT
  Sex: Male

DRUGS (2)
  1. EVEROLIMUS [Suspect]
     Active Substance: EVEROLIMUS
     Indication: Renal cancer
     Dosage: FREQUENCY : DAILY;?
     Route: 048
     Dates: start: 202308
  2. LENVIMA [Concomitant]
     Active Substance: LENVATINIB

REACTIONS (4)
  - Constipation [None]
  - Therapy interrupted [None]
  - Nausea [None]
  - Mood swings [None]
